FAERS Safety Report 6537816-1 (Version None)
Quarter: 2010Q1

REPORT INFORMATION
  Report Type: 
  Country: None (occurrence: None)
  Receive Date: 20100114
  Receipt Date: 20100107
  Transmission Date: 20100710
  Serious: Yes (Hospitalization, Other)
  Sender: FDA-Public Use
  Company Number: US-PFIZER INC-2010003464

PATIENT
  Sex: Female
  Weight: 49 kg

DRUGS (2)
  1. NORVASC [Suspect]
     Indication: HYPERTENSION
     Dosage: 5 MG + 2.5 MG
     Route: 048
  2. TOPROL-XL [Suspect]
     Indication: PALPITATIONS
     Route: 048

REACTIONS (4)
  - ATRIAL FIBRILLATION [None]
  - SICK SINUS SYNDROME [None]
  - SPINAL COLUMN STENOSIS [None]
  - SYNCOPE [None]
